FAERS Safety Report 25492010 (Version 1)
Quarter: 2025Q2

REPORT INFORMATION
  Report Type: Spontaneous
  Country: ES (occurrence: ES)
  Receive Date: 20250630
  Receipt Date: 20250630
  Transmission Date: 20250717
  Serious: Yes (Hospitalization)
  Sender: STRIDES
  Company Number: ES-STRIDES ARCOLAB LIMITED-2025SP008012

PATIENT
  Age: 42 Year
  Sex: Male

DRUGS (4)
  1. DOXYCYCLINE [Interacting]
     Active Substance: DOXYCYCLINE
     Indication: Malaria
     Route: 065
  2. TACROLIMUS [Interacting]
     Active Substance: TACROLIMUS
     Indication: Immunosuppressant drug therapy
     Route: 065
  3. PREDNISOLONE [Interacting]
     Active Substance: PREDNISOLONE
     Indication: Immunosuppressant drug therapy
     Route: 065
  4. CINCHONIDINE\CINCHONINE\QUINIDINE\QUININE [Interacting]
     Active Substance: CINCHONIDINE\CINCHONINE\QUINIDINE\QUININE
     Indication: Malaria
     Route: 065

REACTIONS (2)
  - Drug interaction [Unknown]
  - Off label use [Unknown]
